FAERS Safety Report 9275638 (Version 1)
Quarter: 2013Q2

REPORT INFORMATION
  Report Type: Report from Study
  Country: US (occurrence: US)
  Receive Date: 20130507
  Receipt Date: 20130507
  Transmission Date: 20140414
  Serious: Yes (Hospitalization)
  Sender: FDA-Public Use
  Company Number: US-ROCHE-1219845

PATIENT
  Age: 72 Year
  Sex: Female
  Weight: 78.91 kg

DRUGS (20)
  1. BORTEZOMIB [Suspect]
     Indication: DIFFUSE LARGE B-CELL LYMPHOMA
     Route: 065
     Dates: start: 20130128, end: 20130405
  2. RITUXIMAB [Suspect]
     Indication: DIFFUSE LARGE B-CELL LYMPHOMA
     Route: 065
     Dates: start: 20130128, end: 20130402
  3. CYCLOPHOSPHAMIDE [Suspect]
     Indication: DIFFUSE LARGE B-CELL LYMPHOMA
     Route: 065
     Dates: start: 20120128, end: 20130402
  4. DOXORUBICIN [Suspect]
     Indication: DIFFUSE LARGE B-CELL LYMPHOMA
     Route: 065
     Dates: start: 20120128, end: 20130402
  5. VINCRISTINE [Suspect]
     Indication: DIFFUSE LARGE B-CELL LYMPHOMA
     Route: 065
     Dates: start: 20120128, end: 20130402
  6. PREDNISONE [Suspect]
     Indication: DIFFUSE LARGE B-CELL LYMPHOMA
     Route: 048
  7. ZOVIRAX [Concomitant]
  8. LOTENSIN HCT [Concomitant]
  9. DECADRON [Concomitant]
  10. DIFLUCAN [Concomitant]
  11. FOLVITE [Concomitant]
  12. VICODIN [Concomitant]
  13. ATIVAN [Concomitant]
  14. GLUCOPHAGE [Concomitant]
  15. PRILOSEC [Concomitant]
  16. ZOFRAN [Concomitant]
  17. K-DUR [Concomitant]
  18. COMPAZINE [Concomitant]
  19. ZOCOR [Concomitant]
  20. VENOFER [Concomitant]

REACTIONS (1)
  - Syncope [Recovering/Resolving]
